FAERS Safety Report 10396081 (Version 1)
Quarter: 2014Q3

REPORT INFORMATION
  Report Type: Spontaneous
  Country: US (occurrence: None)
  Receive Date: 20140815
  Receipt Date: 20140815
  Transmission Date: 20150326
  Serious: Yes (Disabling, Other)
  Sender: FDA-Public Use
  Company Number: None

PATIENT
  Age: 75 Year
  Sex: Female
  Weight: 63.05 kg

DRUGS (1)
  1. ZOFRAN [Suspect]
     Active Substance: ONDANSETRON HYDROCHLORIDE
     Indication: NAUSEA
     Dosage: DISSOLVE1 TABLET EVERY 8 HRS ?THREE TIMES DAILY?TAKEN BY MOUTH
     Route: 048
     Dates: start: 20140807, end: 20140807

REACTIONS (5)
  - Dizziness [None]
  - Weight decreased [None]
  - Nausea [None]
  - Aphagia [None]
  - Fluid intake reduced [None]

NARRATIVE: CASE EVENT DATE: 20140807
